FAERS Safety Report 6248838-2 (Version None)
Quarter: 2009Q2

REPORT INFORMATION
  Report Type: 
  Country: None (occurrence: None)
  Receive Date: 20090629
  Receipt Date: 20090617
  Transmission Date: 20091009
  Serious: Yes (Hospitalization)
  Sender: FDA-Public Use
  Company Number: GB-PFIZER INC-2008072323

PATIENT
  Age: 56 Year

DRUGS (10)
  1. SUNITINIB MALATE [Suspect]
     Indication: BREAST CANCER
     Dosage: 37.5 MG, 1X/DAY
     Route: 048
     Dates: start: 20080609, end: 20080804
  2. *CAPECITABINE [Suspect]
     Indication: BREAST CANCER
     Dosage: 1000 MG, ALTERNATE DAY
     Route: 048
     Dates: start: 20080609, end: 20080727
  3. MORPHINE SULFATE [Concomitant]
     Indication: ANALGESIA
  4. CYCLIZINE [Concomitant]
     Indication: ANTIEMETIC SUPPORTIVE CARE
     Dosage: 50 MG, 3X/DAY
     Dates: start: 20080609
  5. ZOPICLONE [Concomitant]
     Indication: SEDATION
     Dosage: 7.5 MG, AT NIGHT
  6. SENNA [Concomitant]
     Indication: LAXATIVE SUPPORTIVE CARE
     Dosage: TWO TABLETS, TWICE DAILY
  7. LACTULOSE [Concomitant]
     Indication: LAXATIVE SUPPORTIVE CARE
     Dosage: 10 MG, 2X/DAY
  8. NYSTATIN [Concomitant]
     Indication: ANTIFUNGAL PROPHYLAXIS
     Dosage: 1 MG, 3X/DAY
     Dates: start: 20080804
  9. CORSODYL [Concomitant]
     Dosage: 10 MG, 2X/DAY
     Dates: start: 20080609
  10. DIFFLAM [Concomitant]
     Dosage: 15 MG, 3X/DAY
     Dates: start: 20080609

REACTIONS (3)
  - DYSPNOEA [None]
  - NAUSEA [None]
  - VOMITING [None]
